FAERS Safety Report 8762208 (Version 3)
Quarter: 2018Q2

REPORT INFORMATION
  Report Type: Report from Study
  Country: ZA (occurrence: ZA)
  Receive Date: 20120830
  Receipt Date: 20180615
  Transmission Date: 20180711
  Serious: Yes (Death, Hospitalization, Other)
  Sender: FDA-Public Use
  Company Number: ZA-ROCHE-1109699

PATIENT
  Age: 65 Year
  Sex: Female
  Weight: 94 kg

DRUGS (4)
  1. MIRCERA [Suspect]
     Active Substance: METHOXY POLYETHYLENE GLYCOL-EPOETIN BETA
     Route: 065
  2. VENOFER [Concomitant]
     Active Substance: IRON SUCROSE
  3. MIRCERA [Suspect]
     Active Substance: METHOXY POLYETHYLENE GLYCOL-EPOETIN BETA
     Route: 065
  4. MIRCERA [Suspect]
     Active Substance: METHOXY POLYETHYLENE GLYCOL-EPOETIN BETA
     Indication: NEPHROGENIC ANAEMIA
     Route: 065
     Dates: start: 20101012

REACTIONS (9)
  - Death [Fatal]
  - Coma [Unknown]
  - Weight decreased [Unknown]
  - Fluid overload [Unknown]
  - Haemoglobin increased [Unknown]
  - Limb injury [Unknown]
  - Cardiac disorder [Unknown]
  - Sepsis [Unknown]
  - Blood iron decreased [Unknown]

NARRATIVE: CASE EVENT DATE: 20120828
